FAERS Safety Report 20465252 (Version 1)
Quarter: 2022Q1

REPORT INFORMATION
  Report Type: Spontaneous
  Country: US (occurrence: US)
  Receive Date: 20220211
  Receipt Date: 20220211
  Transmission Date: 20220423
  Serious: Yes (Other)
  Sender: FDA-Public Use
  Company Number: US-NOVARTISPH-NVSC2022US032581

PATIENT
  Age: 57 Year
  Sex: Male

DRUGS (2)
  1. RANITIDINE [Suspect]
     Active Substance: RANITIDINE
     Indication: Neoplasm malignant
     Dosage: 150 MG,,,OTHER,DAILY FOR A TIME AND THEN STOPPED FOR FOUR YEARS THEN BACK TO TAKING IT DAILY
     Route: 048
     Dates: start: 198801, end: 201911
  2. RANITIDINE [Suspect]
     Active Substance: RANITIDINE
     Indication: Neoplasm malignant
     Dosage: 150 MG,,,OTHER,DAILY FOR A TIME AND THEN STOPPED FOR FOUR YEARS THEN BACK TO TAKING IT DAILY
     Route: 048
     Dates: start: 198801, end: 201911

REACTIONS (2)
  - Renal cancer [Unknown]
  - Incorrect dose administered [Unknown]

NARRATIVE: CASE EVENT DATE: 20181101
